FAERS Safety Report 10244909 (Version 2)
Quarter: 2014Q3

REPORT INFORMATION
  Report Type: Spontaneous
  Country: US (occurrence: US)
  Receive Date: 20140618
  Receipt Date: 20140912
  Transmission Date: 20150326
  Serious: No
  Sender: FDA-Public Use
  Company Number: US-GALDERMA-US14001623

PATIENT
  Age: 26 Year
  Sex: Female

DRUGS (4)
  1. MIRVASO [Suspect]
     Active Substance: BRIMONIDINE TARTRATE
     Indication: ROSACEA
     Dosage: 0.33%
     Route: 061
     Dates: start: 20140425, end: 20140429
  2. MARY KAY ENRICHED MOISTURIZER WITH SUN SCREEN [Concomitant]
     Indication: DRY SKIN PROPHYLAXIS
     Route: 061
     Dates: start: 2009
  3. NEUTROGENA FOUNDATION [Concomitant]
     Route: 061
  4. MARY KAY SENSITIVE CREAM CLEANSER [Concomitant]
     Indication: THERAPEUTIC SKIN CARE TOPICAL
     Route: 061
     Dates: start: 2009

REACTIONS (6)
  - Skin burning sensation [Recovered/Resolved]
  - Skin warm [Recovering/Resolving]
  - Erythema [Recovering/Resolving]
  - Condition aggravated [Recovered/Resolved]
  - Feeling hot [Recovering/Resolving]
  - Flushing [Recovered/Resolved]

NARRATIVE: CASE EVENT DATE: 20140425
